FAERS Safety Report 7228828-3 (Version None)
Quarter: 2011Q1

REPORT INFORMATION
  Report Type: 
  Country: None (occurrence: None)
  Receive Date: 20110117
  Receipt Date: 20101129
  Transmission Date: 20110831
  Serious: Yes (Other)
  Sender: FDA-Public Use
  Company Number: US-BAYER-201016594NA

PATIENT
  Sex: Female
  Weight: 136.1 kg

DRUGS (10)
  1. OCELLA [Suspect]
     Indication: CONTRACEPTION
     Route: 048
     Dates: start: 20070101, end: 20090108
  2. UNCODEABLE ^UNCLASSIFIABLE^ [Concomitant]
  3. YASMIN [Suspect]
     Indication: CONTRACEPTION
     Route: 048
     Dates: start: 20070101, end: 20090108
  4. ALEVE [Concomitant]
  5. YASMIN [Suspect]
     Indication: METRORRHAGIA
  6. UNCODEABLE ^UNCLASSIFIABLE^ [Concomitant]
     Indication: MIGRAINE
  7. EXCEDRIN ASPIRIN FREE [Concomitant]
  8. OCELLA [Suspect]
     Indication: METRORRHAGIA
  9. IBUPROFEN [Concomitant]
  10. PREVACID [Concomitant]

REACTIONS (8)
  - GALLBLADDER DISORDER [None]
  - ABDOMINAL PAIN UPPER [None]
  - NAUSEA [None]
  - GASTROOESOPHAGEAL REFLUX DISEASE [None]
  - DYSPEPSIA [None]
  - FLATULENCE [None]
  - DIARRHOEA [None]
  - VOMITING [None]
